FAERS Safety Report 10588883 (Version 1)
Quarter: 2014Q4

REPORT INFORMATION
  Report Type: Report from Study
  Country: NL (occurrence: NL)
  Receive Date: 20141117
  Receipt Date: 20141117
  Transmission Date: 20150529
  Serious: Yes (Other)
  Sender: FDA-Public Use
  Company Number: NL-AMGEN-NLDSL2012086781

PATIENT
  Age: 53 Year
  Sex: Female

DRUGS (3)
  1. ADRIAMYCIN [Concomitant]
     Active Substance: DOXORUBICIN HYDROCHLORIDE
     Dosage: UNK
  2. BLEOMYCIN [Concomitant]
     Active Substance: BLEOMYCIN SULFATE
     Dosage: UNK
  3. NEULASTA [Suspect]
     Active Substance: PEGFILGRASTIM
     Indication: PRODUCT USED FOR UNKNOWN INDICATION
     Dosage: 6 MG, Q3WK
     Route: 065

REACTIONS (9)
  - Paraesthesia [Unknown]
  - Temperature intolerance [Unknown]
  - Myalgia [Recovered/Resolved]
  - Listless [Unknown]
  - Hypoaesthesia [Unknown]
  - Fatigue [Unknown]
  - Cystitis [Unknown]
  - Haemoglobin abnormal [Unknown]
  - Pain in extremity [Unknown]
